FAERS Safety Report 24367012 (Version 2)
Quarter: 2024Q4

REPORT INFORMATION
  Report Type: Spontaneous
  Country: US (occurrence: US)
  Receive Date: 20240926
  Receipt Date: 20241031
  Transmission Date: 20250114
  Serious: Yes (Other)
  Sender: PFIZER
  Company Number: US-PFIZER INC-PV202400125044

PATIENT
  Age: 38 Year
  Sex: Male

DRUGS (1)
  1. XELJANZ XR [Suspect]
     Active Substance: TOFACITINIB CITRATE
     Indication: Rheumatoid arthritis
     Dosage: 11 MG, 1X/DAY
     Route: 048
     Dates: start: 2022

REACTIONS (5)
  - Biliary dyskinesia [Unknown]
  - Back pain [Recovering/Resolving]
  - Product dose omission in error [Unknown]
  - Condition aggravated [Not Recovered/Not Resolved]
  - Sensitivity to weather change [Not Recovered/Not Resolved]

NARRATIVE: CASE EVENT DATE: 20240901
